FAERS Safety Report 12638534 (Version 4)
Quarter: 2016Q4

REPORT INFORMATION
  Report Type: Report from Study
  Country: US (occurrence: US)
  Receive Date: 20160809
  Receipt Date: 20161213
  Transmission Date: 20170207
  Serious: Yes (Death, Hospitalization, Other)
  Sender: FDA-Public Use
  Company Number: US-BAYER-2016-154126

PATIENT
  Age: 64 Year
  Sex: Female

DRUGS (2)
  1. STIVARGA [Suspect]
     Active Substance: REGORAFENIB
     Indication: RECTAL CANCER
     Dosage: 120 MG, QD FOR 21 DAYS ON THEN 7 DAYS OFF
     Route: 048
     Dates: start: 20160623, end: 2016
  2. STIVARGA [Suspect]
     Active Substance: REGORAFENIB
     Indication: RECTAL CANCER
     Dosage: 80 MG DAILY (2 TABLETS DAILY)
     Route: 048
     Dates: start: 201609, end: 201612

REACTIONS (6)
  - Intensive care [None]
  - Laryngeal nerve dysfunction [None]
  - Rectal cancer [Fatal]
  - Metastases to lymph nodes [None]
  - Aphonia [Not Recovered/Not Resolved]
  - Adverse drug reaction [None]

NARRATIVE: CASE EVENT DATE: 2016
